FAERS Safety Report 6213238-8 (Version None)
Quarter: 2009Q2

REPORT INFORMATION
  Report Type: 
  Country: None (occurrence: None)
  Receive Date: 20090603
  Receipt Date: 20090528
  Transmission Date: 20091009
  Serious: Yes (Other)
  Sender: FDA-Public Use
  Company Number: PHHY2009DE10235

PATIENT
  Sex: Female
  Weight: 79 kg

DRUGS (7)
  1. RASILEZ HCT [Suspect]
     Indication: HYPERTENSION
     Dosage: 1 DF, QD
     Route: 048
     Dates: start: 20090220, end: 20090310
  2. RASILEZ HCT [Suspect]
     Dosage: 1 DF (300/25 MG), QD
     Route: 048
     Dates: start: 20090311
  3. METOPROLOL SUCCINATE [Concomitant]
     Indication: HYPERTENSION
     Dosage: 1 DF, BID
     Dates: start: 20090223
  4. AMLODIPIN ^ORIFARM^ [Concomitant]
     Indication: HYPERTENSION
     Dosage: 1 DF, BID
     Dates: start: 20090223, end: 20090330
  5. COTRIM [Concomitant]
     Indication: URINARY TRACT INFECTION
     Dosage: 960 MG/DAY
     Route: 048
     Dates: start: 20090217, end: 20090221
  6. CARMEN [Concomitant]
     Indication: HYPERTENSION
     Dosage: 1 DF, BID
     Route: 048
     Dates: start: 20090330
  7. MOXONIDINE [Concomitant]
     Indication: HYPERTENSION
     Dosage: 1 DF, BID
     Route: 048
     Dates: start: 20090330

REACTIONS (11)
  - GAMMA-GLUTAMYLTRANSFERASE INCREASED [None]
  - HAEMOGLOBIN DECREASED [None]
  - HYPERTENSION [None]
  - IRON DEFICIENCY ANAEMIA [None]
  - MEAN CELL HAEMOGLOBIN CONCENTRATION DECREASED [None]
  - MEAN CELL HAEMOGLOBIN DECREASED [None]
  - MEAN CELL VOLUME DECREASED [None]
  - MICROCYTIC ANAEMIA [None]
  - PLATELET COUNT INCREASED [None]
  - SERUM FERRITIN DECREASED [None]
  - WHITE BLOOD CELL COUNT INCREASED [None]
